FAERS Safety Report 4888180-5 (Version None)
Quarter: 2006Q1

REPORT INFORMATION
  Report Type: 
  Country: None (occurrence: None)
  Receive Date: 20060123
  Receipt Date: 20051221
  Transmission Date: 20060701
  Serious: Yes (Life-Threatening, Hospitalization)
  Sender: FDA-Public Use
  Company Number: PHHO2005KR19885

PATIENT
  Age: 63 Year
  Sex: Female

DRUGS (3)
  1. CO-DIOVAN T32564+ [Suspect]
     Indication: HYPERTENSION
     Dosage: 160 MG
     Route: 048
  2. AMLODIPINE [Suspect]
     Indication: HYPERTENSION
     Dosage: 5 MG
     Route: 048
  3. ISRADIPINE [Concomitant]

REACTIONS (5)
  - CEREBRAL INFARCTION [None]
  - CEREBRAL ISCHAEMIA [None]
  - HYPOTENSION [None]
  - SHOCK [None]
  - VOMITING [None]
